FAERS Safety Report 7415437-6 (Version None)
Quarter: 2011Q2

REPORT INFORMATION
  Report Type: 
  Country: None (occurrence: None)
  Receive Date: 20110414
  Receipt Date: 20110412
  Transmission Date: 20111010
  Serious: Yes (Hospitalization)
  Sender: FDA-Public Use
  Company Number: PHHO2011CA06513

PATIENT
  Sex: Male

DRUGS (3)
  1. EVEROLIMUS [Suspect]
     Dosage: 1.75 MG
     Route: 048
     Dates: start: 20101005
  2. EVEROLIMUS [Suspect]
     Indication: ORGAN TRANSPLANT
     Dosage: 0.75 MG, BID
     Route: 048
     Dates: start: 20100916
  3. EVEROLIMUS [Suspect]
     Dosage: 1 MG, BID
     Route: 048
     Dates: start: 20101006

REACTIONS (1)
  - PERIPHERAL EMBOLISM [None]
